FAERS Safety Report 21572112 (Version 2)
Quarter: 2022Q4

REPORT INFORMATION
  Report Type: Report from Study
  Country: US (occurrence: US)
  Receive Date: 20221109
  Receipt Date: 20221116
  Transmission Date: 20230112
  Serious: Yes (Hospitalization)
  Sender: FDA-Public Use
  Company Number: US-JNJFOC-20221049739

PATIENT
  Age: 50 Year
  Sex: Female
  Weight: 65.9 kg

DRUGS (4)
  1. EPOPROSTENOL SODIUM [Suspect]
     Active Substance: EPOPROSTENOL SODIUM
     Indication: Pulmonary arterial hypertension
     Route: 042
  2. EPOPROSTENOL SODIUM [Suspect]
     Active Substance: EPOPROSTENOL SODIUM
     Dosage: VELETRI 1.5MG VIAL INTRAVENOUS CONTINUOUS
     Route: 042
  3. REVATIO [Concomitant]
     Active Substance: SILDENAFIL CITRATE
  4. ADCIRCA [Concomitant]
     Active Substance: TADALAFIL

REACTIONS (4)
  - Device occlusion [Unknown]
  - Underdose [Unknown]
  - Dizziness [Unknown]
  - Fatigue [Unknown]

NARRATIVE: CASE EVENT DATE: 20221001
